FAERS Safety Report 16443183 (Version 1)
Quarter: 2019Q2

REPORT INFORMATION
  Report Type: Spontaneous
  Country: US (occurrence: US)
  Receive Date: 20190617
  Receipt Date: 20190617
  Transmission Date: 20190711
  Serious: Yes (Other)
  Sender: FDA-Public Use
  Company Number: US-SA-2018SA001501

PATIENT
  Age: 56 Year
  Sex: Female
  Weight: 78 kg

DRUGS (4)
  1. NEOSAR [Concomitant]
     Active Substance: CYCLOPHOSPHAMIDE
     Dosage: UNK, Q3W
     Route: 042
     Dates: start: 20070406, end: 20070406
  2. NEOSAR [Concomitant]
     Active Substance: CYCLOPHOSPHAMIDE
     Dosage: UNK UNK,UNK
     Route: 042
     Dates: start: 20061222, end: 20061222
  3. TAXOTERE [Suspect]
     Active Substance: DOCETAXEL
     Dosage: UNK UNK,Q3W (150 MG/ 250 ML)
     Route: 042
     Dates: start: 20070406, end: 20070406
  4. TAXOTERE [Suspect]
     Active Substance: DOCETAXEL
     Indication: BREAST CANCER FEMALE
     Dosage: UNK UNK,Q3W(150 MG/ 250 ML)
     Route: 042
     Dates: start: 20061222, end: 20061222

REACTIONS (1)
  - Alopecia [Recovering/Resolving]

NARRATIVE: CASE EVENT DATE: 200704
